FAERS Safety Report 13489292 (Version 1)
Quarter: 2017Q2

REPORT INFORMATION
  Report Type: Spontaneous
  Country: SE (occurrence: SE)
  Receive Date: 20170427
  Receipt Date: 20170427
  Transmission Date: 20170830
  Serious: Yes (Hospitalization)
  Sender: FDA-Public Use
  Company Number: SE-PFIZER INC-2017178100

PATIENT
  Age: 34 Year
  Sex: Male

DRUGS (6)
  1. LYRICA [Concomitant]
     Active Substance: PREGABALIN
     Dosage: UNK
  2. XANOR [Suspect]
     Active Substance: ALPRAZOLAM
     Indication: PAIN
     Dosage: 2 MG, SINGLE
     Route: 048
     Dates: start: 20150216, end: 20150216
  3. OXYCONTIN [Suspect]
     Active Substance: OXYCODONE HYDROCHLORIDE
     Indication: PAIN
     Dosage: 120 MG, SINGLE
     Route: 048
     Dates: start: 20150216, end: 20150216
  4. THERALEN [Concomitant]
     Active Substance: TRIMEPRAZINE
     Dosage: UNK
  5. LANEXAT [Concomitant]
     Dosage: UNK
  6. IKTORIVIL [Suspect]
     Active Substance: CLONAZEPAM
     Indication: PAIN
     Dosage: 1 MG, SINGLE
     Route: 048
     Dates: start: 20150216, end: 20150216

REACTIONS (3)
  - Dyspnoea [Recovered/Resolved with Sequelae]
  - Drug use disorder [Recovered/Resolved with Sequelae]
  - Depressed level of consciousness [Recovered/Resolved with Sequelae]

NARRATIVE: CASE EVENT DATE: 20150216
